FAERS Safety Report 8833628 (Version 1)
Quarter: 2012Q4

REPORT INFORMATION
  Report Type: 
  Country: US (occurrence: US)
  Receive Date: 20121010
  Receipt Date: 20121010
  Transmission Date: 20130627
  Serious: Yes (Hospitalization)
  Sender: FDA-Public Use
  Company Number: US-MYLANLABS-2012S1020343

PATIENT
  Age: 85 Year
  Sex: Female

DRUGS (10)
  1. CEFTAROLINE FOSAMIL [Suspect]
     Indication: CELLULITIS
     Route: 042
  2. WARFARIN [Interacting]
     Dosage: 2.5 mg/day
     Route: 065
  3. CARVEDILOL [Concomitant]
     Route: 065
  4. SIMVASTATIN [Concomitant]
     Dosage: 20mg at bedtime
     Route: 065
  5. ASPIRIN [Concomitant]
     Dosage: 81 mg/day
     Route: 065
  6. ANASTROZOLE [Concomitant]
     Dosage: 1 mg/day
     Route: 065
  7. OMEPRAZOLE [Concomitant]
     Dosage: 20 mg/day
     Route: 065
  8. VENLAFAXINE [Concomitant]
     Dosage: 37.5 mg/day
     Route: 065
  9. CEFTRIAXONE [Concomitant]
     Indication: CELLULITIS
     Route: 042
  10. VANCOMYCIN [Concomitant]
     Indication: CELLULITIS
     Route: 042

REACTIONS (2)
  - Haemarthrosis [Recovering/Resolving]
  - Drug interaction [Recovering/Resolving]
